FAERS Safety Report 24706532 (Version 1)
Quarter: 2024Q4

REPORT INFORMATION
  Report Type: Spontaneous
  Country: DE (occurrence: DE)
  Receive Date: 20241206
  Receipt Date: 20241206
  Transmission Date: 20250114
  Serious: Yes (Life-Threatening)
  Sender: FENNEC PHARMACEUTICALS
  Company Number: DE-FENNEC PHARMACEUTICALS, INC.-2024FEN00078

PATIENT
  Sex: Female

DRUGS (1)
  1. SODIUM THIOSULFATE [Suspect]
     Active Substance: SODIUM THIOSULFATE
     Dosage: UNK
     Route: 065

REACTIONS (2)
  - Electrolyte imbalance [Unknown]
  - Blood pressure abnormal [Unknown]
